FAERS Safety Report 21093722 (Version 2)
Quarter: 2022Q4

REPORT INFORMATION
  Report Type: Spontaneous
  Country: BR (occurrence: None)
  Receive Date: 20220718
  Receipt Date: 20221013
  Transmission Date: 20230112
  Serious: Yes (Hospitalization, Disabling)
  Sender: FDA-Public Use
  Company Number: BR-ROCHE-3141230

PATIENT
  Sex: Female

DRUGS (3)
  1. RIVOTRIL [Suspect]
     Active Substance: CLONAZEPAM
     Indication: Insomnia
     Dosage: MANY YEARS AGO
     Route: 048
     Dates: start: 20220701
  2. RIVOTRIL [Suspect]
     Active Substance: CLONAZEPAM
     Dosage: 1 TABLET A DAY (UP TO 3 OR 4 TOO)
     Route: 048
     Dates: start: 20220701
  3. PROPRANOLOL [Concomitant]
     Active Substance: PROPRANOLOL HYDROCHLORIDE
     Indication: Hypertension
     Dosage: 2 TABLETS A DAY, MANY YEARS AGO
     Route: 048

REACTIONS (6)
  - Spinal operation [Recovering/Resolving]
  - Walking disability [Recovered/Resolved]
  - Impaired driving ability [Not Recovered/Not Resolved]
  - Prescription drug used without a prescription [Unknown]
  - Off label use [Unknown]
  - Incorrect product administration duration [Unknown]
